FAERS Safety Report 12979737 (Version 1)
Quarter: 2016Q4

REPORT INFORMATION
  Report Type: Report from Study
  Country: AU (occurrence: AU)
  Receive Date: 20161128
  Receipt Date: 20161128
  Transmission Date: 20170207
  Serious: Yes (Death)
  Sender: FDA-Public Use
  Company Number: AU-ASTRAZENECA-2014SE24517

PATIENT
  Sex: Female

DRUGS (2)
  1. ARIMIDEX [Suspect]
     Active Substance: ANASTROZOLE
     Indication: BREAST CANCER
     Route: 048
  2. ALENDROBELL (ALENDRONATE SODIUM\CHOLECALCIFEROL) [Suspect]
     Active Substance: ALENDRONATE SODIUM\CHOLECALCIFEROL
     Indication: BONE DENSITY ABNORMAL
     Route: 048

REACTIONS (2)
  - Death [Fatal]
  - Bone density decreased [Unknown]

NARRATIVE: CASE EVENT DATE: 20140401
